FAERS Safety Report 10701168 (Version 2)
Quarter: 2015Q4

REPORT INFORMATION
  Report Type: Report from Study
  Country: UA (occurrence: UA)
  Receive Date: 20150109
  Receipt Date: 20151201
  Transmission Date: 20160304
  Serious: Yes (Death)
  Sender: FDA-Public Use
  Company Number: US-SA-2015SA001918

PATIENT
  Age: 37 Year
  Sex: Female
  Weight: 60 kg

DRUGS (12)
  1. BLINDED THERAPY [Suspect]
     Active Substance: INVESTIGATIONAL PRODUCT
     Indication: BREAST CANCER
     Dosage: BLINDED INFORMATION WITHHELD.
     Route: 065
     Dates: start: 20141127, end: 20141127
  2. ADEMETIONINE [Concomitant]
     Active Substance: ADEMETIONINE
     Indication: ALANINE AMINOTRANSFERASE INCREASED
     Dates: start: 20141120, end: 20141202
  3. CARBOPLATIN. [Suspect]
     Active Substance: CARBOPLATIN
     Indication: BREAST CANCER
     Dosage: DOSE: 612 MG EVERY 3 WEEKS
     Route: 042
     Dates: start: 20141127, end: 20141127
  4. APREPITANT. [Concomitant]
     Active Substance: APREPITANT
     Indication: ANTIEMETIC SUPPORTIVE CARE
     Dates: start: 20141128, end: 20141128
  5. DEXAMETHASONE. [Concomitant]
     Active Substance: DEXAMETHASONE
     Indication: PREMEDICATION
     Dates: start: 20141126, end: 20141128
  6. MAGNESIUM ASPARTATE/ASPARTATE POTASSIUM [Concomitant]
     Indication: PROPHYLAXIS
     Dates: start: 20141126, end: 20141128
  7. IOPROMIDE [Concomitant]
     Active Substance: IOPROMIDE
     Dates: start: 20141119
  8. ONDANSETRON [Concomitant]
     Active Substance: ONDANSETRON
     Indication: ANTIEMETIC SUPPORTIVE CARE
     Dates: start: 20141127
  9. FILGRASTIM [Concomitant]
     Active Substance: FILGRASTIM
     Indication: NEUTROPENIA
     Dates: start: 20141201, end: 20141202
  10. TAXOTERE [Suspect]
     Active Substance: DOCETAXEL
     Indication: BREAST CANCER
     Dosage: DOSE: 127 MG EVERY 3 WEEKS
     Route: 042
     Dates: start: 20141127, end: 20141127
  11. FAMOTIDINE. [Concomitant]
     Active Substance: FAMOTIDINE
     Indication: PREMEDICATION
     Dates: start: 20141126, end: 20141128
  12. APREPITANT. [Concomitant]
     Active Substance: APREPITANT
     Indication: ANTIEMETIC SUPPORTIVE CARE
     Dates: start: 20141127, end: 20141127

REACTIONS (1)
  - Pancytopenia [Fatal]

NARRATIVE: CASE EVENT DATE: 20141202
